FAERS Safety Report 7660332-0 (Version None)
Quarter: 2011Q3

REPORT INFORMATION
  Report Type: 
  Country: None (occurrence: None)
  Receive Date: 20110805
  Receipt Date: 20110727
  Transmission Date: 20111222
  Serious: Yes (Hospitalization, Other)
  Sender: FDA-Public Use
  Company Number: US-ELI_LILLY_AND_COMPANY-US200810006304

PATIENT
  Sex: Female
  Weight: 80.726 kg

DRUGS (5)
  1. LISINOPRIL [Concomitant]
     Dosage: 2.5 MG, QD
  2. METFORMIN HCL [Concomitant]
     Indication: DIABETES MELLITUS
     Dosage: 500 MG, BID
     Dates: start: 20081003, end: 20081023
  3. BYETTA [Suspect]
     Indication: TYPE 2 DIABETES MELLITUS
     Dosage: 5 UG, BID
     Route: 065
     Dates: start: 20081017, end: 20081023
  4. PRAVASTATIN [Concomitant]
     Indication: HYPERCHOLESTEROLAEMIA
     Dosage: 10 MG, EACH EVENING
     Dates: start: 20081001
  5. PRILOSEC [Concomitant]
     Dosage: 20 MG, QD

REACTIONS (2)
  - WEIGHT DECREASED [None]
  - PANCREATITIS ACUTE [None]
